FAERS Safety Report 4783540-5 (Version None)
Quarter: 2005Q3

REPORT INFORMATION
  Report Type: 
  Country: None (occurrence: None)
  Receive Date: 20050929
  Receipt Date: 20050920
  Transmission Date: 20060218
  Serious: Yes (Death)
  Sender: FDA-Public Use
  Company Number: PHFR2005GB03136

PATIENT
  Sex: Male

DRUGS (1)
  1. GLEEVEC [Suspect]
     Route: 065

REACTIONS (1)
  - SUDDEN DEATH [None]
